FAERS Safety Report 6986598-8 (Version None)
Quarter: 2010Q3

REPORT INFORMATION
  Report Type: 
  Country: None (occurrence: None)
  Receive Date: 20100827
  Receipt Date: 20100526
  Transmission Date: 20110219
  Serious: Yes (Hospitalization)
  Sender: FDA-Public Use
  Company Number: AMAG201000251

PATIENT
  Age: 81 Year
  Weight: 86 kg

DRUGS (7)
  1. FERAHEME [Suspect]
     Indication: IRON DEFICIENCY ANAEMIA
     Dosage: 510MG, SINGLE, INTRAVENOUS
     Route: 042
     Dates: start: 20100525, end: 20100525
  2. COREG [Concomitant]
  3. PRILOSEC (OMEPRAZOLE) [Concomitant]
  4. ASPIRIN [Concomitant]
  5. CENTRIUM SILVER (ASCORBIC ACID, CALCIUM, MINERALS NOS, RETINOL, TECOPH [Concomitant]
  6. OSCAL [Concomitant]
  7. LAXIS (FUROSEMIDE) [Concomitant]

REACTIONS (10)
  - CHEST DISCOMFORT [None]
  - DYSPNOEA [None]
  - HYPERSENSITIVITY [None]
  - HYPOTENSION [None]
  - NAUSEA [None]
  - OEDEMA PERIPHERAL [None]
  - PRURITUS [None]
  - URTICARIA [None]
  - VOMITING [None]
  - WHEEZING [None]
